FAERS Safety Report 10623626 (Version 1)
Quarter: 2014Q4

REPORT INFORMATION
  Report Type: Spontaneous
  Country: US (occurrence: US)
  Receive Date: 20141203
  Receipt Date: 20141203
  Transmission Date: 20150529
  Serious: Yes (Hospitalization, Other)
  Sender: FDA-Public Use
  Company Number: US-ELI_LILLY_AND_COMPANY-US201411009991

PATIENT
  Sex: Female

DRUGS (2)
  1. HUMALOG [Suspect]
     Active Substance: INSULIN LISPRO
     Indication: TYPE 1 DIABETES MELLITUS
     Dosage: 4 U, QID
     Route: 065
     Dates: start: 2011
  2. LANTUS [Concomitant]
     Active Substance: INSULIN GLARGINE
     Dosage: 12 U, EACH EVENING

REACTIONS (9)
  - Visual acuity reduced [Unknown]
  - Neuropathy peripheral [Unknown]
  - Epistaxis [Unknown]
  - Transient ischaemic attack [Unknown]
  - Amnesia [Recovering/Resolving]
  - Cognitive disorder [Unknown]
  - Pain in extremity [Unknown]
  - Metal poisoning [Unknown]
  - Blood glucose increased [Unknown]
